FAERS Safety Report 5832713-9 (Version None)
Quarter: 2008Q3

REPORT INFORMATION
  Report Type: 
  Country: None (occurrence: None)
  Receive Date: 20080804
  Receipt Date: 20080722
  Transmission Date: 20090109
  Serious: Yes (Other)
  Sender: FDA-Public Use
  Company Number: PHEH2008US06596

PATIENT
  Sex: Male

DRUGS (3)
  1. AREDIA [Suspect]
     Indication: OSTEOPOROSIS PROPHYLAXIS
     Dosage: UNK
     Dates: start: 20010101, end: 20020101
  2. ZOMETA [Suspect]
     Indication: OSTEOPOROSIS
     Dosage: UNK
  3. FOSAMAX [Suspect]
     Dosage: UNK
     Dates: start: 20010101, end: 20020201

REACTIONS (5)
  - ANXIETY [None]
  - DECREASED INTEREST [None]
  - INJURY [None]
  - OSTEONECROSIS [None]
  - PAIN [None]
